FAERS Safety Report 4809649-5 (Version None)
Quarter: 2005Q4

REPORT INFORMATION
  Report Type: 
  Country: None (occurrence: None)
  Receive Date: 20051024
  Receipt Date: 20031118
  Transmission Date: 20060501
  Serious: Yes (Hospitalization, Other)
  Sender: FDA-Public Use
  Company Number: US153323

PATIENT
  Age: 16 Year
  Sex: Male

DRUGS (4)
  1. ENBREL [Suspect]
     Dosage: 2 IN 1 WEEKS, SC
     Route: 058
  2. CORTICOSTEROIDD NOS [Concomitant]
  3. OXYGEN [Concomitant]
  4. RADIATION THERAPY [Concomitant]

REACTIONS (27)
  - ABNORMAL BEHAVIOUR [None]
  - ABSCESS [None]
  - APHASIA [None]
  - AREFLEXIA [None]
  - ASTHENIA [None]
  - BLOOD IMMUNOGLOBULIN A DECREASED [None]
  - BLOOD IMMUNOGLOBULIN G DECREASED [None]
  - BLOOD IMMUNOGLOBULIN M DECREASED [None]
  - BRAIN OEDEMA [None]
  - CEREBRAL DISORDER [None]
  - COMA [None]
  - CSF PROTEIN INCREASED [None]
  - DEPRESSED LEVEL OF CONSCIOUSNESS [None]
  - DIPLOPIA [None]
  - DISORIENTATION [None]
  - HEADACHE [None]
  - HYPOGAMMAGLOBULINAEMIA [None]
  - HYPOTONIA [None]
  - LETHARGY [None]
  - NEUROLOGICAL SYMPTOM [None]
  - PANCREATITIS [None]
  - PAPILLOEDEMA [None]
  - PYREXIA [None]
  - TOXOPLASMOSIS [None]
  - TREMOR [None]
  - VISUAL FIELD DEFECT [None]
  - VOMITING [None]
